FAERS Safety Report 9444516 (Version 2)
Quarter: 2013Q3

REPORT INFORMATION
  Report Type: Spontaneous
  Country: US (occurrence: US)
  Receive Date: 20130807
  Receipt Date: 20130809
  Transmission Date: 20140515
  Serious: No
  Sender: FDA-Public Use
  Company Number: US-PFIZER INC-2013228313

PATIENT
  Sex: Female

DRUGS (5)
  1. LYRICA [Suspect]
     Indication: HYPOAESTHESIA
     Dosage: 75 MG, 1X/DAY
     Route: 048
     Dates: start: 20130729, end: 20130801
  2. HYDROCHLOROTHIAZIDE [Interacting]
     Dosage: UNK
  3. TRIAMTERENE [Interacting]
     Dosage: UNK
  4. PHENTERMINE [Interacting]
     Dosage: UNK
  5. FLEXERIL [Interacting]
     Dosage: UNK

REACTIONS (6)
  - Off label use [Unknown]
  - Drug interaction [Unknown]
  - Pain in extremity [Unknown]
  - Muscle spasms [Unknown]
  - Middle insomnia [Unknown]
  - Pain [Unknown]
